FAERS Safety Report 13998599 (Version 1)
Quarter: 2017Q3

REPORT INFORMATION
  Report Type: Spontaneous
  Country: AU (occurrence: AU)
  Receive Date: 20170922
  Receipt Date: 20170922
  Transmission Date: 20171128
  Serious: Yes (Other)
  Sender: FDA-Public Use
  Company Number: AU-ASTELLAS-2017US037732

PATIENT
  Age: 47 Year
  Sex: Female

DRUGS (8)
  1. RIFABUTIN. [Interacting]
     Active Substance: RIFABUTIN
     Indication: TUBERCULOSIS
     Dosage: UNK UNK, UNKNOWN FREQ.
     Route: 065
  2. PYRAZINAMIDE. [Interacting]
     Active Substance: PYRAZINAMIDE
     Indication: TUBERCULOSIS
     Dosage: UNK UNK, UNKNOWN FREQ.
     Route: 065
  3. ETHAMBUTOL [Interacting]
     Active Substance: ETHAMBUTOL HYDROCHLORIDE
     Indication: TUBERCULOSIS
     Dosage: UNK, UNKNOWN FREQ.
     Route: 065
  4. BASILIXIMAB [Concomitant]
     Active Substance: BASILIXIMAB
     Indication: RENAL TRANSPLANT
     Dosage: UNK, UNKNOWN FREQ.
     Route: 065
  5. TACROLIMUS. [Suspect]
     Active Substance: TACROLIMUS
     Indication: RENAL TRANSPLANT
     Dosage: UNK, UNKNOWN FREQ.
     Route: 065
  6. ISONIAZID. [Interacting]
     Active Substance: ISONIAZID
     Indication: TUBERCULOSIS
     Dosage: UNK UNK, UNKNOWN FREQ.
     Route: 065
  7. MYCOPHENOLATE [Concomitant]
     Active Substance: MYCOPHENOLIC ACID
     Indication: RENAL TRANSPLANT
     Dosage: UNK, UNKNOWN FREQ.
     Route: 065
  8. PREDNISOLONE. [Concomitant]
     Active Substance: PREDNISOLONE
     Indication: RENAL TRANSPLANT
     Dosage: UNK, UNKNOWN FREQ.
     Route: 065

REACTIONS (9)
  - Complications of transplanted kidney [Recovering/Resolving]
  - Tuberculosis [Unknown]
  - Dehydration [Unknown]
  - Diarrhoea [Unknown]
  - Herpes simplex [Unknown]
  - Salpingectomy [Unknown]
  - Oophorectomy [Unknown]
  - Nausea [Unknown]
  - Drug interaction [Unknown]
